FAERS Safety Report 5194520-2 (Version None)
Quarter: 2006Q4

REPORT INFORMATION
  Report Type: 
  Country: None (occurrence: None)
  Receive Date: 20061222
  Receipt Date: 20061214
  Transmission Date: 20070319
  Serious: Yes (Death)
  Sender: FDA-Public Use
  Company Number: 2006-151872-NL

PATIENT
  Age: 27 Year
  Sex: Female

DRUGS (1)
  1. MARVELON [Suspect]
     Indication: CONTRACEPTION
     Dosage: DF

REACTIONS (1)
  - PULMONARY EMBOLISM [None]
